FAERS Safety Report 7745962-X (Version None)
Quarter: 2011Q3

REPORT INFORMATION
  Report Type: 
  Country: None (occurrence: None)
  Receive Date: 20110913
  Receipt Date: 20110901
  Transmission Date: 20111222
  Serious: Yes (Other)
  Sender: FDA-Public Use
  Company Number: IE-UCBSA-040582

PATIENT

DRUGS (1)
  1. CIMZIA [Suspect]

REACTIONS (1)
  - ARTHRITIS BACTERIAL [None]
